FAERS Safety Report 4638150-7 (Version None)
Quarter: 2005Q2

REPORT INFORMATION
  Report Type: 
  Country: None (occurrence: None)
  Receive Date: 20050415
  Receipt Date: 20050324
  Transmission Date: 20051028
  Serious: Yes (Other)
  Sender: FDA-Public Use
  Company Number: USA050394019

PATIENT
  Age: 43 Year
  Sex: Female

DRUGS (1)
  1. HUMATROPE [Suspect]
     Dosage: 0.3 MG DAY
     Dates: start: 20050222

REACTIONS (5)
  - CONVULSION [None]
  - HEADACHE [None]
  - INJECTION SITE HAEMORRHAGE [None]
  - INJECTION SITE IRRITATION [None]
  - PHARMACEUTICAL PRODUCT COMPLAINT [None]
